FAERS Safety Report 14348224 (Version 3)
Quarter: 2018Q1

REPORT INFORMATION
  Report Type: Spontaneous
  Country: JP (occurrence: JP)
  Receive Date: 20180103
  Receipt Date: 20180202
  Transmission Date: 20180509
  Serious: Yes (Other)
  Sender: FDA-Public Use
  Company Number: JP-GLAXOSMITHKLINE-JP2017GSK202294

PATIENT
  Age: 67 Year
  Sex: Male

DRUGS (1)
  1. OMEGA-3-ACID ETHYL ESTERS. [Suspect]
     Active Substance: OMEGA-3-ACID ETHYL ESTERS
     Indication: PRODUCT USED FOR UNKNOWN INDICATION
     Dosage: 2 G, UNK
     Route: 048

REACTIONS (4)
  - Labelled drug-disease interaction medication error [Unknown]
  - Subdural haemorrhage [Unknown]
  - Contraindicated drug prescribed [Unknown]
  - Fall [Unknown]

NARRATIVE: CASE EVENT DATE: 20171221
